FAERS Safety Report 21645941 (Version 2)
Quarter: 2024Q2

REPORT INFORMATION
  Report Type: Spontaneous
  Country: US (occurrence: US)
  Receive Date: 20221126
  Receipt Date: 20240508
  Transmission Date: 20240715
  Serious: No
  Sender: FDA-Public Use
  Company Number: US-ABBVIE-4207568

PATIENT
  Sex: Male
  Weight: 78 kg

DRUGS (5)
  1. LUPRON [Suspect]
     Active Substance: LEUPROLIDE ACETATE
     Indication: Lung neoplasm malignant
     Route: 030
  2. ELIGARD [Suspect]
     Active Substance: LEUPROLIDE ACETATE
     Indication: Lung neoplasm malignant
     Route: 065
  3. FLOMAX [Concomitant]
     Active Substance: TAMSULOSIN HYDROCHLORIDE
     Indication: Hypertension
  4. ENZALUTAMIDE [Suspect]
     Active Substance: ENZALUTAMIDE
     Indication: Lung neoplasm malignant
     Dosage: 40 MG TABLET FORM STRENGTH: 160 MILLIGRAM DURATION TEXT: 6.5 MONTHS
     Route: 048
     Dates: start: 2020
  5. ENZALUTAMIDE [Suspect]
     Active Substance: ENZALUTAMIDE
     Indication: Lung neoplasm malignant
     Dosage: 40 MG TABLET FORM STRENGTH: 160 MILLIGRAM
     Route: 048
     Dates: start: 2020

REACTIONS (6)
  - Insomnia [Unknown]
  - Therapeutic product effect incomplete [Unknown]
  - Constipation [Unknown]
  - Hot flush [Unknown]
  - Gynaecomastia [Unknown]
  - Off label use [Unknown]

NARRATIVE: CASE EVENT DATE: 20200101
